FAERS Safety Report 11159561 (Version 1)
Quarter: 2015Q2

REPORT INFORMATION
  Report Type: Spontaneous
  Country: IT (occurrence: IT)
  Receive Date: 20150603
  Receipt Date: 20150603
  Transmission Date: 20150821
  Serious: Yes (Hospitalization)
  Sender: FDA-Public Use
  Company Number: IT-ASTRAZENECA-2015SE52584

PATIENT
  Age: 34162 Day
  Sex: Female

DRUGS (9)
  1. TRIATEC [Concomitant]
     Active Substance: RAMIPRIL
  2. CONGESCOR [Concomitant]
     Active Substance: BISOPROLOL
  3. SIMVASTATIN. [Concomitant]
     Active Substance: SIMVASTATIN
  4. ZYLORIC [Interacting]
     Active Substance: ALLOPURINOL
     Route: 048
  5. ALDACTONE [Concomitant]
     Active Substance: SPIRONOLACTONE
  6. COUMADIN [Interacting]
     Active Substance: WARFARIN SODIUM
     Indication: ATRIAL FIBRILLATION
     Route: 048
  7. LUCEN [Suspect]
     Active Substance: ESOMEPRAZOLE
     Route: 048
  8. LANOXIN [Concomitant]
     Active Substance: DIGOXIN
  9. LASIX [Concomitant]
     Active Substance: FUROSEMIDE

REACTIONS (4)
  - Anaemia [Recovering/Resolving]
  - Melaena [Recovering/Resolving]
  - International normalised ratio increased [Recovering/Resolving]
  - Drug interaction [Unknown]

NARRATIVE: CASE EVENT DATE: 20150301
